FAERS Safety Report 9709443 (Version 5)
Quarter: 2014Q1

REPORT INFORMATION
  Report Type: Spontaneous
  Country: US (occurrence: US)
  Receive Date: 20131126
  Receipt Date: 20140204
  Transmission Date: 20141002
  Serious: Yes (Death)
  Sender: FDA-Public Use
  Company Number: US-ROCHE-1231943

PATIENT
  Age: 57 Year
  Sex: Female
  Weight: 71.28 kg

DRUGS (5)
  1. XELODA [Suspect]
     Indication: BREAST CANCER
     Route: 065
     Dates: start: 20130526, end: 20130529
  2. XELODA [Suspect]
     Indication: BREAST CANCER METASTATIC
     Dosage: RESTARTED
     Route: 065
  3. XELODA [Suspect]
     Indication: BREAST DISCHARGE
     Dosage: BID WEEKS ON AND WEEK OFF
     Route: 065
     Dates: start: 20121120, end: 20130322
  4. XELODA [Suspect]
     Route: 065
     Dates: start: 20121204
  5. CELEXA (UNITED STATES) [Concomitant]
     Route: 048

REACTIONS (4)
  - Breast cancer metastatic [Fatal]
  - Vomiting [Recovered/Resolved]
  - Diarrhoea [Unknown]
  - Nausea [Recovered/Resolved]
